FAERS Safety Report 14625895 (Version 2)
Quarter: 2018Q1

REPORT INFORMATION
  Report Type: Spontaneous
  Country: JP (occurrence: JP)
  Receive Date: 20180312
  Receipt Date: 20180327
  Transmission Date: 20180509
  Serious: Yes (Other)
  Sender: FDA-Public Use
  Company Number: JP-ROCHE-1952470

PATIENT
  Age: 87 Year
  Sex: Female

DRUGS (5)
  1. NORVASC [Concomitant]
     Active Substance: AMLODIPINE BESYLATE
     Dosage: DOSAGE IS UNCERTAIN.
     Route: 065
     Dates: start: 20000806
  2. FEBURIC [Concomitant]
     Active Substance: FEBUXOSTAT
     Dosage: DOSAGE IS UNCERTAIN.
     Route: 065
  3. EDIROL [Concomitant]
     Active Substance: ELDECALCITOL
     Indication: OSTEOPOROSIS
     Route: 048
     Dates: start: 20120121
  4. BONVIVA [Suspect]
     Active Substance: IBANDRONATE SODIUM
     Indication: OSTEOPOROSIS
     Route: 042
     Dates: start: 20120121
  5. MILLISROL [Concomitant]
     Indication: ANGINA PECTORIS
     Route: 062
     Dates: start: 20030906

REACTIONS (5)
  - Spinal compression fracture [Recovering/Resolving]
  - Gastric ulcer [Unknown]
  - Body height decreased [Unknown]
  - Spinal deformity [Unknown]
  - Drug ineffective [Unknown]

NARRATIVE: CASE EVENT DATE: 201501
